FAERS Safety Report 7241608-8 (Version None)
Quarter: 2011Q1

REPORT INFORMATION
  Report Type: 
  Country: None (occurrence: None)
  Receive Date: 20110124
  Receipt Date: 20110119
  Transmission Date: 20110831
  Serious: Yes (Other)
  Sender: FDA-Public Use
  Company Number: CN-GENZYME-CERZ-1001792

PATIENT
  Sex: Male
  Weight: 20 kg

DRUGS (2)
  1. CEREZYME [Suspect]
     Indication: GAUCHER'S DISEASE
     Dosage: 40 U/KG, Q4W
     Route: 042
     Dates: start: 20090816
  2. CEREZYME [Suspect]
     Dosage: 40 U/KG, Q2W
     Route: 042
     Dates: start: 20060901, end: 20090801

REACTIONS (1)
  - CONVULSION [None]
